FAERS Safety Report 20565341 (Version 1)
Quarter: 2022Q1

REPORT INFORMATION
  Report Type: Spontaneous
  Country: US (occurrence: US)
  Receive Date: 20220308
  Receipt Date: 20220308
  Transmission Date: 20220424
  Serious: No
  Sender: FDA-Public Use
  Company Number: US-GLAXOSMITHKLINE-US2022AMR040805

PATIENT
  Age: 53 Year
  Sex: Female

DRUGS (2)
  1. FLOLAN [Suspect]
     Active Substance: EPOPROSTENOL SODIUM
     Indication: Pulmonary arterial hypertension
     Dosage: 33 NG/KG/MIN , CO
     Dates: start: 20170602
  2. FLOLAN [Suspect]
     Active Substance: EPOPROSTENOL SODIUM
     Indication: Vehicle solution use
     Dosage: UNK

REACTIONS (2)
  - Product administration interrupted [Unknown]
  - Product complaint [Unknown]

NARRATIVE: CASE EVENT DATE: 20220206
